FAERS Safety Report 9849762 (Version 1)
Quarter: 2014Q1

REPORT INFORMATION
  Report Type: Spontaneous
  Country: US (occurrence: None)
  Receive Date: 20140124
  Receipt Date: 20140124
  Transmission Date: 20141002
  Serious: Yes (Life-Threatening, Disabling)
  Sender: FDA-Public Use
  Company Number: None

PATIENT
  Age: 52 Year
  Sex: Male
  Weight: 88.45 kg

DRUGS (1)
  1. ANDROGEL [Suspect]

REACTIONS (7)
  - Blood pressure increased [None]
  - Malaise [None]
  - Pruritus [None]
  - Bed rest [None]
  - Activities of daily living impaired [None]
  - Haemoglobin increased [None]
  - Red blood cell count increased [None]
